FAERS Safety Report 15622659 (Version 1)
Quarter: 2018Q4

REPORT INFORMATION
  Report Type: Spontaneous
  Country: IT (occurrence: IT)
  Receive Date: 20181115
  Receipt Date: 20181115
  Transmission Date: 20190205
  Serious: Yes (Other)
  Sender: FDA-Public Use
  Company Number: IT-ASTRAZENECA-2018SF46845

PATIENT
  Age: 82 Year
  Sex: Female

DRUGS (4)
  1. OLAPARIB. [Suspect]
     Active Substance: OLAPARIB
     Route: 048
     Dates: start: 20151201, end: 201711
  2. OLAPARIB. [Suspect]
     Active Substance: OLAPARIB
     Route: 048
     Dates: start: 20151103
  3. OLAPARIB. [Suspect]
     Active Substance: OLAPARIB
     Route: 048
     Dates: start: 201801, end: 201806
  4. TAXOL [Concomitant]
     Active Substance: PACLITAXEL
     Dosage: 80 MG/MQ (TOTAL DOSE AT 75%)

REACTIONS (8)
  - Anaemia [Recovered/Resolved]
  - Influenza [Unknown]
  - Carbohydrate antigen 125 increased [Unknown]
  - Toxicity to various agents [Unknown]
  - Nausea [Unknown]
  - Abdominal pain upper [Unknown]
  - Asthenia [Recovered/Resolved]
  - Malignant neoplasm progression [Unknown]

NARRATIVE: CASE EVENT DATE: 201512
